FAERS Safety Report 13852601 (Version 3)
Quarter: 2017Q3

REPORT INFORMATION
  Report Type: Spontaneous
  Country: FR (occurrence: FR)
  Receive Date: 20170810
  Receipt Date: 20170918
  Transmission Date: 20171127
  Serious: Yes (Hospitalization)
  Sender: FDA-Public Use
  Company Number: FR-AUROBINDO-AUR-APL-2017-38403

PATIENT
  Age: 67 Year
  Sex: Female

DRUGS (8)
  1. PREDNISOLONE. [Suspect]
     Active Substance: PREDNISOLONE
     Indication: PRODUCT USED FOR UNKNOWN INDICATION
     Dosage: 60 MG, ONCE A DAY
     Route: 048
  2. LOVENOX [Suspect]
     Active Substance: ENOXAPARIN SODIUM
     Indication: THROMBOSIS PROPHYLAXIS
     Dosage: 1 DF, DAILY ((1 DOSAGE FORM, ONCE DAILY)
     Route: 058
  3. SPASFON                            /00765801/ [Suspect]
     Active Substance: PHLOROGLUCINOL\1,3,5-TRIMETHOXYBENZENE
     Indication: PRODUCT USED FOR UNKNOWN INDICATION
     Dosage: 6 DF, DAILY (2 DOSAGE FORMS, THREE TIMES A DAY)
     Route: 048
  4. SMECTA [Suspect]
     Active Substance: MONTMORILLONITE
     Indication: DIARRHOEA
     Dosage: 3 DF, DAILY ((1 DOSAGE FORM, THREE TIMES A DAY)
     Route: 048
  5. TEMESTA                            /00273201/ [Suspect]
     Active Substance: LORAZEPAM
     Indication: SLEEP DISORDER
     Dosage: 1 DF, ONCE A DAY
     Route: 048
  6. RAMIPRIL ARROW LAB 5 MG SCORED TABLET [Suspect]
     Active Substance: RAMIPRIL
     Indication: HYPERTENSION
     Dosage: 1 DF, ONCE A DAY
     Route: 048
  7. ATEZOLIZUMAB. [Suspect]
     Active Substance: ATEZOLIZUMAB
     Indication: TRANSITIONAL CELL CARCINOMA
     Dosage: 571429 MG, (1200 MG, ONCE IN 21 DAYS)
     Route: 042
     Dates: start: 20170511, end: 20170619
  8. LOXEN                              /00639802/ [Suspect]
     Active Substance: NICARDIPINE
     Indication: HYPERTENSION
     Dosage: 2 DF, TWO TIMES A DAY ((1 DOSAGE FORM, TWICE DAILY)
     Route: 048

REACTIONS (1)
  - Ischaemic stroke [Recovering/Resolving]

NARRATIVE: CASE EVENT DATE: 20170709
